FAERS Safety Report 10155972 (Version 7)
Quarter: 2014Q2

REPORT INFORMATION
  Report Type: Spontaneous
  Country: US (occurrence: US)
  Receive Date: 20140506
  Receipt Date: 20140627
  Transmission Date: 20141212
  Serious: Yes (Death, Hospitalization, Other)
  Sender: FDA-Public Use
  Company Number: US-BAXTER-2014BAX021866

PATIENT
  Age: 65 Year
  Sex: Male

DRUGS (4)
  1. DIANEAL LOW CALCIUM [Suspect]
     Indication: PERITONEAL DIALYSIS
     Route: 033
     Dates: end: 20140618
  2. DIANEAL LOW CALCIUM [Suspect]
     Dosage: 3 BAGS
     Route: 033
  3. DIANEAL LOW CALCIUM [Suspect]
     Indication: RENAL FAILURE CHRONIC
     Dosage: 3 BAGS
     Route: 033
     Dates: end: 20140618
  4. DIANEAL LOW CALCIUM [Suspect]
     Dosage: 3 BAGS
     Route: 033

REACTIONS (4)
  - Death [Fatal]
  - Sepsis [Recovering/Resolving]
  - Clostridium difficile infection [Recovering/Resolving]
  - Gangrene [Unknown]
